FAERS Safety Report 7275239-0 (Version None)
Quarter: 2011Q1

REPORT INFORMATION
  Report Type: 
  Country: None (occurrence: None)
  Receive Date: 20110204
  Receipt Date: 20110131
  Transmission Date: 20110831
  Serious: Yes (Death, Other)
  Sender: FDA-Public Use
  Company Number: PHHY2010US77237

PATIENT
  Sex: Female
  Weight: 70.3 kg

DRUGS (1)
  1. TOBI [Suspect]
     Indication: CHRONIC OBSTRUCTIVE PULMONARY DISEASE
     Dosage: 300 MG, BID

REACTIONS (4)
  - ACUTE MYELOID LEUKAEMIA RECURRENT [None]
  - MENTAL STATUS CHANGES [None]
  - CEREBROVASCULAR ACCIDENT [None]
  - LEUKAEMIA RECURRENT [None]
